FAERS Safety Report 8759110 (Version 1)
Quarter: 2012Q4

REPORT INFORMATION
  Report Type: 
  Country: US (occurrence: US)
  Receive Date: 20120829
  Receipt Date: 20120829
  Transmission Date: 20130627
  Serious: Yes (Hospitalization)
  Sender: FDA-Public Use
  Company Number: PHEH2012US016577

PATIENT
  Sex: Male

DRUGS (8)
  1. ARCAPTA [Suspect]
  2. VITAMIN C [Concomitant]
  3. SPIRIVA [Concomitant]
  4. CRESTOR [Concomitant]
  5. ANDROGEL [Concomitant]
  6. AMBIEN [Concomitant]
  7. ASPIRIN [Concomitant]
  8. VITAMIN D [Concomitant]
     Dosage: UNK

REACTIONS (4)
  - Dry mouth [Unknown]
  - Respiratory rate increased [Unknown]
  - Dizziness [Unknown]
  - Muscle spasms [Unknown]
